FAERS Safety Report 22051055 (Version 2)
Quarter: 2023Q1

REPORT INFORMATION
  Report Type: Spontaneous
  Country: US (occurrence: US)
  Receive Date: 20230301
  Receipt Date: 20230303
  Transmission Date: 20230418
  Serious: Yes (Other)
  Sender: FDA-Public Use
  Company Number: US-MLMSERVICE-20230217-4112523-1

PATIENT
  Age: 5 Year
  Sex: Female

DRUGS (10)
  1. DOXORUBICIN HYDROCHLORIDE [Suspect]
     Active Substance: DOXORUBICIN HYDROCHLORIDE
     Indication: Teratoma
     Dosage: UNK
     Dates: start: 2015
  2. DOXORUBICIN HYDROCHLORIDE [Suspect]
     Active Substance: DOXORUBICIN HYDROCHLORIDE
     Indication: Primitive neuroectodermal tumour metastatic
  3. VINCRISTINE SULFATE [Suspect]
     Active Substance: VINCRISTINE SULFATE
     Indication: Teratoma
     Dosage: UNK
     Dates: start: 2015
  4. VINCRISTINE SULFATE [Suspect]
     Active Substance: VINCRISTINE SULFATE
     Indication: Primitive neuroectodermal tumour metastatic
  5. CYCLOPHOSPHAMIDE [Suspect]
     Active Substance: CYCLOPHOSPHAMIDE
     Indication: Teratoma
     Dosage: UNK
     Dates: start: 2015
  6. CYCLOPHOSPHAMIDE [Suspect]
     Active Substance: CYCLOPHOSPHAMIDE
     Indication: Primitive neuroectodermal tumour metastatic
  7. ETOPOSIDE [Suspect]
     Active Substance: ETOPOSIDE
     Indication: Teratoma
     Dosage: UNK
     Dates: start: 2015
  8. ETOPOSIDE [Suspect]
     Active Substance: ETOPOSIDE
     Indication: Primitive neuroectodermal tumour metastatic
  9. IFOSFAMIDE [Suspect]
     Active Substance: IFOSFAMIDE
     Indication: Teratoma
     Dosage: UNK
     Dates: start: 2015
  10. IFOSFAMIDE [Suspect]
     Active Substance: IFOSFAMIDE
     Indication: Primitive neuroectodermal tumour metastatic

REACTIONS (3)
  - Streptococcal bacteraemia [Unknown]
  - Pneumonia pneumococcal [Unknown]
  - Febrile neutropenia [Unknown]

NARRATIVE: CASE EVENT DATE: 20150101
